FAERS Safety Report 6123075-0 (Version None)
Quarter: 2009Q1

REPORT INFORMATION
  Report Type: 
  Country: None (occurrence: None)
  Receive Date: 20090318
  Receipt Date: 20090306
  Transmission Date: 20090719
  Serious: Yes (Other)
  Sender: FDA-Public Use
  Company Number: ES-PFIZER INC-2009164445

PATIENT

DRUGS (15)
  1. ZYVOXID [Suspect]
     Dosage: 2 MG/ML SOLUTION FOR INFUSION, 10 BAGS OF 300 ML
     Route: 042
     Dates: start: 20080801, end: 20081003
  2. TIENAM [Interacting]
     Indication: DEPRESSION
     Route: 048
     Dates: start: 20070101, end: 20081003
  3. SEROPRAM [Interacting]
     Indication: STENT RELATED INFECTION
     Route: 042
     Dates: start: 20080929, end: 20081006
  4. DIGOXIN [Concomitant]
  5. PARACETAMOL [Concomitant]
  6. ENALAPRIL MALEATE [Concomitant]
  7. OMEPRAZOLE [Concomitant]
  8. ACFOL [Concomitant]
     Route: 048
  9. EMCONCOR [Concomitant]
     Route: 048
  10. ADIRO [Concomitant]
     Route: 048
  11. EMPORTAL [Concomitant]
     Route: 048
  12. EUTIROX [Concomitant]
     Route: 048
  13. FERROSANOL DUODENAL [Concomitant]
     Route: 048
  14. LEXATIN [Concomitant]
     Route: 048
  15. SINTROM [Concomitant]
     Route: 048

REACTIONS (4)
  - DEPRESSED LEVEL OF CONSCIOUSNESS [None]
  - DRUG INTERACTION [None]
  - GRAND MAL CONVULSION [None]
  - SEROTONIN SYNDROME [None]
